FAERS Safety Report 18748487 (Version 1)
Quarter: 2021Q1

REPORT INFORMATION
  Report Type: Spontaneous
  Country: US (occurrence: US)
  Receive Date: 20210116
  Receipt Date: 20210116
  Transmission Date: 20210419
  Serious: No
  Sender: FDA-Public Use
  Company Number: US-AUROBINDO-AUR-APL-2020-036313

PATIENT

DRUGS (1)
  1. DEXTROAMPHET SACCHARAT, AMPHET ASPARTATE, DEXTROAMPHET SULFATE AND AMPHET SULFAT [Suspect]
     Active Substance: AMPHETAMINE ASPARTATE\AMPHETAMINE SULFATE\DEXTROAMPHETAMINE SACCHARATE\DEXTROAMPHETAMINE SULFATE
     Indication: PRODUCT USED FOR UNKNOWN INDICATION
     Dosage: UNK
     Route: 065

REACTIONS (9)
  - Chest discomfort [Unknown]
  - Musculoskeletal discomfort [Unknown]
  - Feeling abnormal [Unknown]
  - Confusional state [Unknown]
  - Muscle tightness [Unknown]
  - Memory impairment [Unknown]
  - Drug ineffective [Unknown]
  - Withdrawal syndrome [Unknown]
  - Tension headache [Unknown]
